FAERS Safety Report 22739724 (Version 3)
Quarter: 2023Q4

REPORT INFORMATION
  Report Type: Report from Study
  Country: US (occurrence: US)
  Receive Date: 20230722
  Receipt Date: 20231012
  Transmission Date: 20240109
  Serious: Yes (Other)
  Sender: FDA-Public Use
  Company Number: US-002147023-NVSC2023US161041

PATIENT
  Sex: Male

DRUGS (2)
  1. ENTRESTO [Suspect]
     Active Substance: SACUBITRIL\VALSARTAN
     Indication: Product used for unknown indication
     Dosage: UNK
     Route: 065
  2. LOSARTAN [Suspect]
     Active Substance: LOSARTAN
     Indication: Product used for unknown indication
     Dosage: UNK
     Route: 065

REACTIONS (8)
  - Carpal tunnel syndrome [Unknown]
  - Neck mass [Unknown]
  - Arthropathy [Unknown]
  - Pyrexia [Unknown]
  - Oral pain [Unknown]
  - Feeling abnormal [Unknown]
  - Headache [Unknown]
  - Contraindicated product administered [Unknown]
